FAERS Safety Report 6110935-X (Version None)
Quarter: 2009Q1

REPORT INFORMATION
  Report Type: 
  Country: None (occurrence: None)
  Receive Date: 20090311
  Receipt Date: 20090227
  Transmission Date: 20090719
  Serious: Yes (Hospitalization)
  Sender: FDA-Public Use
  Company Number: IT-AVENTIS-200910934EU

PATIENT
  Age: 83 Year
  Sex: Male

DRUGS (14)
  1. TRIATEC                            /00885601/ [Suspect]
     Route: 048
     Dates: start: 20050101
  2. LASIX [Suspect]
     Route: 048
     Dates: start: 20050101
  3. ALDACTONE [Suspect]
     Route: 048
     Dates: start: 20090119, end: 20090204
  4. COUMADIN [Concomitant]
     Dosage: DOSE: UNK
  5. SPIRIVA [Concomitant]
     Dosage: DOSE: 1 DOSE
     Route: 055
  6. TAPAZOLE [Concomitant]
     Route: 048
  7. NITRO-DUR [Concomitant]
     Route: 062
  8. LORAZEPAM [Concomitant]
     Route: 048
  9. EPREX [Concomitant]
     Dosage: DOSE: UNK
  10. SYMBICORT [Concomitant]
     Dosage: DOSE: 2 DOSES
     Route: 055
  11. LANOXIN [Concomitant]
     Route: 048
     Dates: start: 20090119
  12. CARVEDILOL [Concomitant]
     Route: 048
     Dates: start: 20080101
  13. CASODEX [Concomitant]
     Route: 048
  14. NORVASC [Concomitant]
     Route: 048

REACTIONS (3)
  - ASTHENIA [None]
  - HYPERKALAEMIA [None]
  - HYPONATRAEMIA [None]
